FAERS Safety Report 16083100 (Version 2)
Quarter: 2019Q1

REPORT INFORMATION
  Report Type: Spontaneous
  Country: FR (occurrence: FR)
  Receive Date: 20190318
  Receipt Date: 20190326
  Transmission Date: 20190418
  Serious: Yes (Life-Threatening, Hospitalization)
  Sender: FDA-Public Use
  Company Number: FR-ACCORD-113068

PATIENT
  Age: 60 Year
  Sex: Male
  Weight: 74 kg

DRUGS (3)
  1. SODIUM LEVOFOLINATE MEDAC [Concomitant]
     Active Substance: LEVOLEUCOVORIN DISODIUM
     Indication: ADJUVANT THERAPY
     Route: 042
     Dates: start: 20181008, end: 20181008
  2. OXALIPLATINE ACCORD [Concomitant]
     Active Substance: OXALIPLATIN
     Indication: ADJUVANT THERAPY
     Dosage: STRENGTH: 5 MG / ML, CONCENTRATE FOR SOLUTION FOR INFUSION
     Route: 041
     Dates: start: 20180517, end: 20180925
  3. FLUOROURACIL ACCORD [Suspect]
     Active Substance: FLUOROURACIL
     Indication: ADJUVANT THERAPY
     Dosage: ALSO RECEIVED 4800 MG, INTRAVENOUS DRIP FROM 17-MAY-18 TO 09-OCT-18 (1200 MG/ M2/ DAY FOR 2 DAYS)
     Route: 040
     Dates: start: 20180517, end: 20181008

REACTIONS (4)
  - Diarrhoea [Recovered/Resolved]
  - Enteritis [Recovered/Resolved with Sequelae]
  - Neutropenia [Recovered/Resolved]
  - Septic shock [Recovered/Resolved]

NARRATIVE: CASE EVENT DATE: 20181009
